FAERS Safety Report 4746362-7 (Version None)
Quarter: 2005Q3

REPORT INFORMATION
  Report Type: 
  Country: None (occurrence: None)
  Receive Date: 20050815
  Receipt Date: 20050805
  Transmission Date: 20060218
  Serious: Yes (Hospitalization, Other)
  Sender: FDA-Public Use
  Company Number: 2004207545AU

PATIENT
  Age: 56 Year
  Sex: Female

DRUGS (8)
  1. CELECOXIB (CELECOXIB) [Suspect]
     Indication: POLYP COLORECTAL
     Dosage: 800 MG (400 MG, 2 IN 1 D), ORAL
     Route: 048
     Dates: start: 20010621, end: 20040101
  2. ACETYLSALICYLIC ACID SRT [Concomitant]
  3. METFORMIN HCL [Concomitant]
  4. ZOCOR [Concomitant]
  5. PRILOSEC [Concomitant]
  6. KARVEA (IRBESARTAN) [Concomitant]
  7. INSULIN (INSULIN) [Concomitant]
  8. NEXIUM [Concomitant]

REACTIONS (3)
  - GLOMERULOSCLEROSIS [None]
  - NEPHRITIS INTERSTITIAL [None]
  - RENAL FAILURE ACUTE [None]
